FAERS Safety Report 7315647-2 (Version None)
Quarter: 2011Q1

REPORT INFORMATION
  Report Type: 
  Country: None (occurrence: None)
  Receive Date: 20110225
  Receipt Date: 20110215
  Transmission Date: 20110831
  Serious: Yes (Other)
  Sender: FDA-Public Use
  Company Number: AU-ROCHE-760304

PATIENT

DRUGS (1)
  1. ISOTRETINOIN [Suspect]
     Route: 065

REACTIONS (1)
  - GASTROINTESTINAL MUCOSAL DISORDER [None]
